FAERS Safety Report 7656244-9 (Version None)
Quarter: 2011Q3

REPORT INFORMATION
  Report Type: 
  Country: None (occurrence: None)
  Receive Date: 20110801
  Receipt Date: 20110630
  Transmission Date: 20111222
  Serious: Yes (Hospitalization, Other)
  Sender: FDA-Public Use
  Company Number: JP-ACCORD-006845

PATIENT
  Age: 66 Year
  Sex: Female

DRUGS (5)
  1. FAMOTIDINE [Concomitant]
  2. RAMOSETRON(RAMOSETRON) [Concomitant]
  3. DEXAMETHASONE [Concomitant]
  4. PACLITAXEL [Suspect]
     Indication: BREAST CANCER
     Dosage: 80.00-MG/M2
     Dates: start: 20070701
  5. DIPHENHYDRAMINE HCL [Concomitant]

REACTIONS (3)
  - INTERSTITIAL LUNG DISEASE [None]
  - PYREXIA [None]
  - RESPIRATORY FAILURE [None]
